FAERS Safety Report 23276746 (Version 1)
Quarter: 2023Q4

REPORT INFORMATION
  Report Type: Spontaneous
  Country: GR (occurrence: None)
  Receive Date: 20231208
  Receipt Date: 20231208
  Transmission Date: 20240110
  Serious: Yes (Other)
  Sender: FDA-Public Use
  Company Number: 2023A278383

PATIENT
  Age: 37 Year
  Sex: Female

DRUGS (1)
  1. LYNPARZA [Suspect]
     Active Substance: OLAPARIB
     Indication: Breast cancer metastatic
     Dosage: UNKNOWN
     Route: 048

REACTIONS (2)
  - Haematotoxicity [Recovered/Resolved]
  - Haematotoxicity [Unknown]
